FAERS Safety Report 10347582 (Version 1)
Quarter: 2014Q3

REPORT INFORMATION
  Report Type: Spontaneous
  Country: US (occurrence: None)
  Receive Date: 20140728
  Receipt Date: 20140728
  Transmission Date: 20150326
  Serious: Yes (Hospitalization, Other)
  Sender: FDA-Public Use
  Company Number: None

PATIENT
  Age: 34 Year

DRUGS (1)
  1. YASMIN [Suspect]
     Active Substance: DROSPIRENONE\ETHINYL ESTRADIOL
     Dosage: 1 TAB QD ORAL
     Route: 048

REACTIONS (3)
  - Cerebral infarction [None]
  - Cerebral haemorrhage [None]
  - Cerebral venous thrombosis [None]

NARRATIVE: CASE EVENT DATE: 20140723
